FAERS Safety Report 8988542 (Version 1)
Quarter: 2012Q4

REPORT INFORMATION
  Report Type: Spontaneous
  Country: HK (occurrence: None)
  Receive Date: 20121218
  Receipt Date: 20121218
  Transmission Date: 20130627
  Serious: Yes (Death, Other)
  Sender: FDA-Public Use
  Company Number: FK201203950

PATIENT
  Age: 51 Year
  Sex: Female

DRUGS (2)
  1. CYTARABINE [Suspect]
     Indication: ACUTE MYELOID LEUKAEMIA
     Dosage: 1 g/m2/d for 5 days
  2. CLOFARABINE [Suspect]
     Indication: ACUTE MYELOID LEUKAEMIA
     Dosage: 40 mg/m2/d for 5 days

REACTIONS (6)
  - Cytarabine syndrome [None]
  - Palmar-plantar erythrodysaesthesia syndrome [None]
  - Granulocytopenia [None]
  - Bone marrow transplant [None]
  - Acute myeloid leukaemia recurrent [None]
  - Staphylococcal sepsis [None]
